FAERS Safety Report 8829780 (Version 1)
Quarter: 2012Q4

REPORT INFORMATION
  Report Type: Spontaneous
  Country: US (occurrence: None)
  Receive Date: 20121005
  Receipt Date: 20121005
  Transmission Date: 20130627
  Serious: Yes (Death)
  Sender: FDA-Public Use
  Company Number: None

PATIENT
  Age: 58 Year
  Sex: Male
  Weight: 114.31 kg

DRUGS (1)
  1. CETUXIMAB [Suspect]
     Indication: COLON CANCER
     Dates: start: 20120820, end: 20120820

REACTIONS (5)
  - Erythema [None]
  - Malaise [None]
  - Unresponsive to stimuli [None]
  - Respiratory arrest [None]
  - Infusion related reaction [None]
